FAERS Safety Report 4801353-2 (Version None)
Quarter: 2005Q4

REPORT INFORMATION
  Report Type: 
  Country: None (occurrence: None)
  Receive Date: 20051012
  Receipt Date: 20051004
  Transmission Date: 20060501
  Serious: Yes (Death)
  Sender: FDA-Public Use
  Company Number: 2005JP001919

PATIENT
  Age: 80 Year
  Sex: Female

DRUGS (1)
  1. FUNGUARD (MICAFUNGIN) INJECTION [Suspect]
     Dosage: 50.00 MG, UID/QD, IV DRIP
     Route: 041

REACTIONS (1)
  - HEPATIC FAILURE [None]
